FAERS Safety Report 8494789-2 (Version None)
Quarter: 2012Q3

REPORT INFORMATION
  Report Type: 
  Country: None (occurrence: None)
  Receive Date: 20120709
  Receipt Date: 20120629
  Transmission Date: 20120928
  Serious: Yes (Other)
  Sender: FDA-Public Use
  Company Number: JP-PFIZER INC-2012157456

PATIENT
  Age: 33 Year
  Sex: Female

DRUGS (1)
  1. AZULFIDINE [Suspect]
     Dosage: UNK
     Dates: start: 20040701, end: 20110501

REACTIONS (1)
  - ANTI-NEUTROPHIL CYTOPLASMIC ANTIBODY POSITIVE VASCULITIS [None]
